FAERS Safety Report 16261036 (Version 1)
Quarter: 2019Q2

REPORT INFORMATION
  Report Type: Report from Study
  Country: US (occurrence: US)
  Receive Date: 20190501
  Receipt Date: 20190501
  Transmission Date: 20190711
  Serious: Yes (Hospitalization)
  Sender: FDA-Public Use
  Company Number: US-ACTELION-A-NJ2018-182407

PATIENT
  Age: 72 Year
  Sex: Female
  Weight: 59.41 kg

DRUGS (1)
  1. OPSUMIT [Suspect]
     Active Substance: MACITENTAN
     Indication: PULMONARY ARTERIAL HYPERTENSION
     Dosage: 10 MG, QD
     Route: 048

REACTIONS (17)
  - Scleroderma [Unknown]
  - Dyspnoea exertional [Unknown]
  - White blood cell count increased [Recovered/Resolved]
  - Pyrexia [Unknown]
  - Nausea [Recovering/Resolving]
  - Vomiting [Unknown]
  - Dizziness [Recovering/Resolving]
  - Dyspnoea [Recovering/Resolving]
  - Weight increased [Recovered/Resolved]
  - Fatigue [Unknown]
  - Red blood cell count increased [Recovered/Resolved]
  - Weight decreased [Recovered/Resolved]
  - Gastrointestinal motility disorder [Unknown]
  - Gastric disorder [Unknown]
  - Abdominal discomfort [Unknown]
  - Viral infection [Unknown]
  - Diarrhoea [Unknown]

NARRATIVE: CASE EVENT DATE: 201810
